FAERS Safety Report 14695205 (Version 1)
Quarter: 2018Q1

REPORT INFORMATION
  Report Type: Spontaneous
  Country: PT (occurrence: PT)
  Receive Date: 20180329
  Receipt Date: 20180329
  Transmission Date: 20180509
  Serious: Yes (Other)
  Sender: FDA-Public Use
  Company Number: PT-ELI_LILLY_AND_COMPANY-PT201803011311

PATIENT
  Age: 58 Year
  Sex: Male
  Weight: 59 kg

DRUGS (3)
  1. 5-FU                               /00098801/ [Concomitant]
     Active Substance: FLUOROURACIL
     Indication: HEAD AND NECK CANCER
     Dosage: 4000 MG/M2, DAILY
     Dates: start: 20160510, end: 20160906
  2. ERBITUX [Suspect]
     Active Substance: CETUXIMAB
     Indication: HEAD AND NECK CANCER
     Dosage: 250 MG/M2, WEEKLY (1/W)
     Route: 065
  3. CARBOPLATIN. [Concomitant]
     Active Substance: CARBOPLATIN
     Indication: HEAD AND NECK CANCER
     Dosage: UNK, OTHER
     Route: 065
     Dates: start: 20160510, end: 20160906

REACTIONS (5)
  - Febrile neutropenia [Unknown]
  - Rash [Unknown]
  - Mucosal inflammation [Unknown]
  - Off label use [Unknown]
  - Nail fold inflammation [Unknown]

NARRATIVE: CASE EVENT DATE: 20160531
